FAERS Safety Report 5139051-0 (Version None)
Quarter: 2006Q4

REPORT INFORMATION
  Report Type: 
  Country: None (occurrence: None)
  Receive Date: 20061030
  Receipt Date: 20060613
  Transmission Date: 20070319
  Serious: No
  Sender: FDA-Public Use
  Company Number: US-GLAXOSMITHKLINE-A0608817A

PATIENT
  Age: 55 Year
  Sex: Female

DRUGS (3)
  1. ADVAIR HFA [Suspect]
     Route: 055
     Dates: start: 20051201
  2. INDOMETHACIN [Concomitant]
     Indication: DRUG USE FOR UNKNOWN INDICATION
     Route: 048
     Dates: start: 20060501
  3. ALBUTEROL [Concomitant]
     Indication: DRUG USE FOR UNKNOWN INDICATION
     Route: 055
     Dates: start: 20051201, end: 20060101

REACTIONS (1)
  - DRUG INEFFECTIVE [None]
